FAERS Safety Report 12951194 (Version 1)
Quarter: 2016Q4

REPORT INFORMATION
  Report Type: Spontaneous
  Country: US (occurrence: US)
  Receive Date: 20161117
  Receipt Date: 20161117
  Transmission Date: 20170207
  Serious: No
  Sender: FDA-Public Use
  Company Number: US-HERITAGE PHARMACEUTICALS-2015HTG00064

PATIENT
  Age: 62 Year
  Sex: Female
  Weight: 65.76 kg

DRUGS (2)
  1. METRONIDAZOLE (MANUFACTURED BY PLIVA) [Concomitant]
     Dosage: 500 MG, 3X/DAY
     Dates: start: 20151114
  2. TETRACYCLINE HYDROCHLORIDE. [Suspect]
     Active Substance: TETRACYCLINE HYDROCHLORIDE
     Indication: DIVERTICULITIS
     Dosage: 250 MG, 2X/DAY
     Route: 048
     Dates: start: 20151114, end: 20151115

REACTIONS (1)
  - Swollen tongue [Recovering/Resolving]

NARRATIVE: CASE EVENT DATE: 20151116
